FAERS Safety Report 18520595 (Version 1)
Quarter: 2020Q4

REPORT INFORMATION
  Report Type: Spontaneous
  Country: IT (occurrence: IT)
  Receive Date: 20201119
  Receipt Date: 20201119
  Transmission Date: 20210114
  Serious: Yes (Hospitalization)
  Sender: FDA-Public Use
  Company Number: IT-SUN PHARMACEUTICAL INDUSTRIES LTD-2020RR-267652

PATIENT
  Age: 79 Year
  Sex: Male

DRUGS (6)
  1. COBICISTAT [Concomitant]
     Active Substance: COBICISTAT
     Indication: COVID-19
     Dosage: 150 MILLIGRAM, DAILY
     Route: 048
  2. HYDROXYCHLOROQUINE [Suspect]
     Active Substance: HYDROXYCHLOROQUINE
     Indication: COVID-19
     Dosage: 200 MILLIGRAM, BID
     Route: 048
  3. CEFTRIAXONE. [Suspect]
     Active Substance: CEFTRIAXONE
     Indication: COVID-19
     Dosage: 2 GRAM, DAILY
     Route: 042
  4. LOPINAVIR/RITONAVIR [Suspect]
     Active Substance: LOPINAVIR\RITONAVIR
     Indication: COVID-19
     Dosage: 400MG/100MG, BID
     Route: 048
  5. TRIMETHOPRIM/SULFAMETHOXAZOLE [Suspect]
     Active Substance: SULFAMETHOXAZOLE\TRIMETHOPRIM
     Indication: COVID-19
     Dosage: 160/800 MG, FOR 7 DAYS
     Route: 048
  6. DARUNAVIR [Concomitant]
     Active Substance: DARUNAVIR
     Indication: COVID-19
     Dosage: 800 MILLIGRAM, DAILY
     Route: 048

REACTIONS (2)
  - Off label use [Unknown]
  - Diarrhoea [Unknown]
